FAERS Safety Report 4274108-8 (Version None)
Quarter: 2004Q1

REPORT INFORMATION
  Report Type: 
  Country: None (occurrence: None)
  Receive Date: 20040120
  Receipt Date: 20040109
  Transmission Date: 20041129
  Serious: Yes (Other)
  Sender: FDA-Public Use
  Company Number: GB-GLAXOSMITHKLINE-B0319421A

PATIENT
  Age: 72 Year
  Sex: Female

DRUGS (6)
  1. AVANDIA [Suspect]
     Dosage: 4MG PER DAY
     Route: 048
     Dates: start: 20030601, end: 20031201
  2. GLICLAZIDE [Concomitant]
     Indication: DIABETES MELLITUS
     Route: 048
     Dates: start: 20030401
  3. IMDUR [Concomitant]
     Indication: ANGINA PECTORIS
     Route: 065
     Dates: start: 19970101
  4. PIRITON [Concomitant]
     Route: 065
     Dates: start: 19970101
  5. LOSEC I.V. [Concomitant]
     Indication: DYSPEPSIA
     Route: 065
     Dates: start: 20030301
  6. FRUMIL [Concomitant]
     Route: 065

REACTIONS (1)
  - ASTHMA [None]
